FAERS Safety Report 23183716 (Version 1)
Quarter: 2023Q4

REPORT INFORMATION
  Report Type: Spontaneous
  Country: CO (occurrence: CO)
  Receive Date: 20231114
  Receipt Date: 20231114
  Transmission Date: 20240110
  Serious: Yes (Death)
  Sender: FDA-Public Use
  Company Number: CO-BoehringerIngelheim-2023-BI-272654

PATIENT
  Age: 60 Year
  Sex: Male

DRUGS (1)
  1. NINTEDANIB [Suspect]
     Active Substance: NINTEDANIB
     Indication: Latent tuberculosis
     Dates: start: 202211

REACTIONS (1)
  - Cardio-respiratory arrest [Fatal]
